FAERS Safety Report 10231523 (Version 1)
Quarter: 2014Q2

REPORT INFORMATION
  Report Type: Report from Study
  Country: US (occurrence: US)
  Receive Date: 20140611
  Receipt Date: 20140611
  Transmission Date: 20141212
  Serious: Yes (Hospitalization)
  Sender: FDA-Public Use
  Company Number: US-ELI_LILLY_AND_COMPANY-US201406000146

PATIENT
  Sex: Female

DRUGS (10)
  1. DULOXETINE HYDROCHLORIDE [Suspect]
     Indication: POST-TRAUMATIC STRESS DISORDER
     Dosage: 60 MG, QD
     Route: 065
     Dates: start: 201310, end: 201405
  2. DULOXETINE HYDROCHLORIDE [Suspect]
     Indication: DEPRESSION
  3. DULOXETINE HYDROCHLORIDE [Suspect]
     Indication: ANXIETY
  4. ABILIFY [Concomitant]
     Indication: DEPRESSION
     Dosage: UNK, UNKNOWN
     Route: 065
  5. LISINOPRIL [Concomitant]
     Indication: BLOOD PRESSURE
     Dosage: UNK, UNKNOWN
     Route: 065
  6. XANAX [Concomitant]
     Indication: ANXIETY
     Dosage: UNK, UNKNOWN
     Route: 065
  7. NEXIUM [Concomitant]
     Indication: GASTROOESOPHAGEAL REFLUX DISEASE
     Dosage: UNK, UNKNOWN
     Route: 065
  8. AMBIEN [Concomitant]
     Indication: INSOMNIA
     Dosage: UNK, PRN
     Route: 065
  9. TRAMADOL [Concomitant]
     Indication: INSOMNIA
     Dosage: UNK, PRN
     Route: 065
  10. CELEXA [Concomitant]
     Dosage: UNK, UNKNOWN
     Route: 065

REACTIONS (8)
  - Pain [Unknown]
  - Decreased appetite [Unknown]
  - Hiatus hernia [Unknown]
  - Pain [Unknown]
  - Somnolence [Unknown]
  - Insomnia [Unknown]
  - Headache [Unknown]
  - Drug withdrawal syndrome [Unknown]
